FAERS Safety Report 25210684 (Version 1)
Quarter: 2025Q2

REPORT INFORMATION
  Report Type: Spontaneous
  Country: GB (occurrence: GB)
  Receive Date: 20250417
  Receipt Date: 20250417
  Transmission Date: 20250717
  Serious: Yes (Hospitalization, Other)
  Sender: ELI LILLY AND CO
  Company Number: GB-MHRA-EMIS-10535-6046a419-ed55-406d-af00-7688e8bd1333

PATIENT
  Age: 50 Year
  Sex: Female
  Weight: 118 kg

DRUGS (1)
  1. TIRZEPATIDE [Suspect]
     Active Substance: TIRZEPATIDE
     Indication: Product used for unknown indication
     Dosage: INJECT ONE 0.6 ML DOSE SUBCUTANEOUSLY ONCE EACH WEEK
     Route: 058
     Dates: start: 20241226, end: 20250226

REACTIONS (1)
  - Hepatitis [Recovering/Resolving]

NARRATIVE: CASE EVENT DATE: 20250101
